FAERS Safety Report 13999483 (Version 1)
Quarter: 2017Q3

REPORT INFORMATION
  Report Type: Spontaneous
  Country: IT (occurrence: IT)
  Receive Date: 20170922
  Receipt Date: 20170922
  Transmission Date: 20171128
  Serious: Yes (Hospitalization)
  Sender: FDA-Public Use
  Company Number: IT-ASTRAZENECA-2017SE95745

PATIENT
  Age: 46 Year
  Sex: Male

DRUGS (2)
  1. DELORAZEPAM [Concomitant]
     Active Substance: DELORAZEPAM
     Dosage: 20 DOSAGE UNIT, FOR 1 DAY
  2. SEROQUEL [Suspect]
     Active Substance: QUETIAPINE FUMARATE
     Dosage: 40 DOSAGE UNIT, FOR 1 DAY
     Route: 048

REACTIONS (3)
  - Disorganised speech [Unknown]
  - Sopor [Unknown]
  - Overdose [Unknown]
